FAERS Safety Report 20016204 (Version 1)
Quarter: 2021Q4

REPORT INFORMATION
  Report Type: Spontaneous
  Country: US (occurrence: None)
  Receive Date: 20211103
  Receipt Date: 20211103
  Transmission Date: 20220303
  Serious: Yes (Other)
  Sender: FDA-Public Use
  Company Number: None

PATIENT
  Age: 56 Year
  Sex: Female

DRUGS (1)
  1. OTEZLA [Suspect]
     Active Substance: APREMILAST
     Indication: Spinal osteoarthritis
     Route: 048
     Dates: start: 202110, end: 202110

REACTIONS (2)
  - Adverse event [None]
  - Therapy cessation [None]

NARRATIVE: CASE EVENT DATE: 20211001
